FAERS Safety Report 21089763 (Version 1)
Quarter: 2022Q3

REPORT INFORMATION
  Report Type: Report from Study
  Country: US (occurrence: None)
  Receive Date: 20220715
  Receipt Date: 20220715
  Transmission Date: 20221027
  Serious: Yes (Hospitalization)
  Sender: FDA-Public Use
  Company Number: US-Eisai Medical Research-EC-2022-118877

PATIENT
  Age: 82 Year
  Sex: Male
  Weight: 102 kg

DRUGS (14)
  1. LENVIMA [Suspect]
     Active Substance: LENVATINIB
     Indication: Thyroid cancer
     Route: 048
     Dates: start: 20220522, end: 202206
  2. LENVIMA [Suspect]
     Active Substance: LENVATINIB
     Route: 048
     Dates: start: 20220607, end: 20220614
  3. LENVIMA [Suspect]
     Active Substance: LENVATINIB
     Route: 048
     Dates: start: 20220615, end: 20220624
  4. ALPRAZOLAM [Concomitant]
     Active Substance: ALPRAZOLAM
  5. CARVEDILOL [Concomitant]
     Active Substance: CARVEDILOL
  6. LIVALO [Concomitant]
     Active Substance: PITAVASTATIN CALCIUM
  7. OLMESARTAN [Concomitant]
     Active Substance: OLMESARTAN
  8. LEVOTHYROXINE [Concomitant]
     Active Substance: LEVOTHYROXINE
  9. TORSEMIDE [Concomitant]
     Active Substance: TORSEMIDE
  10. VASCEPA [Concomitant]
     Active Substance: ICOSAPENT ETHYL
  11. ELIQUIS [Concomitant]
     Active Substance: APIXABAN
  12. VITAMIN D3 [Concomitant]
     Active Substance: CHOLECALCIFEROL
  13. VITAMIN C [Concomitant]
     Active Substance: ASCORBIC ACID
  14. HYDRALAZINE HCL [Concomitant]
     Active Substance: HYDRALAZINE HYDROCHLORIDE

REACTIONS (1)
  - Hypertension [Recovering/Resolving]

NARRATIVE: CASE EVENT DATE: 20220624
